FAERS Safety Report 16704236 (Version 1)
Quarter: 2019Q3

REPORT INFORMATION
  Report Type: Spontaneous
  Country: US (occurrence: US)
  Receive Date: 20190814
  Receipt Date: 20190814
  Transmission Date: 20191004
  Serious: Yes (Hospitalization)
  Sender: FDA-Public Use
  Company Number: US-FRESENIUS MEDICAL CARE RENAL THERAPIES GROUP-FMC-1908-001070

PATIENT
  Sex: Female
  Weight: 53.5 kg

DRUGS (1)
  1. DELFLEX [Suspect]
     Active Substance: CALCIUM CHLORIDE\DEXTROSE\MAGNESIUM CHLORIDE\SODIUM CHLORIDE\SODIUM LACTATE
     Indication: END STAGE RENAL DISEASE
     Dosage: FILL VOLUME OF 1500ML, LAST FILL OF 1000ML, AND A DAY TIME EXCHANGE OF 1000ML
     Route: 033
     Dates: start: 2011

REACTIONS (1)
  - Peritonitis [Recovered/Resolved]
